FAERS Safety Report 4714187-4 (Version None)
Quarter: 2005Q3

REPORT INFORMATION
  Report Type: 
  Country: None (occurrence: None)
  Receive Date: 20050714
  Receipt Date: 20050707
  Transmission Date: 20060218
  Serious: Yes (Other)
  Sender: FDA-Public Use
  Company Number: PHNU2005DE02477

PATIENT
  Age: 23 Year
  Sex: Male

DRUGS (2)
  1. LEPONEX / CLOZARIL (CLOZAPINE) [Suspect]
     Indication: PSYCHOTIC DISORDER
     Dosage: 475 MG/DAY
     Route: 048
     Dates: start: 20030101
  2. FLUVOXAMINE MALEATE [Suspect]
     Dates: end: 20050601

REACTIONS (3)
  - DRUG INTERACTION [None]
  - DRUG LEVEL INCREASED [None]
  - PLEUROTHOTONUS [None]
